FAERS Safety Report 5009964-9 (Version None)
Quarter: 2006Q2

REPORT INFORMATION
  Report Type: 
  Country: None (occurrence: None)
  Receive Date: 20060522
  Receipt Date: 20060510
  Transmission Date: 20061013
  Serious: Yes (Hospitalization)
  Sender: FDA-Public Use
  Company Number: B0424078A

PATIENT
  Age: 24 Year
  Sex: Male

DRUGS (4)
  1. ZOVIRAX [Suspect]
     Dosage: THREE TIMES PER DAY / INTRAVENOUS
     Route: 042
  2. FUSIDIC ACID [Suspect]
     Dosage: 250 MG / THREE TIMES PER DAY / ORAL
     Route: 048
  3. VALTREX [Suspect]
     Dosage: TWICE PER DAY / ORAL
     Route: 048
  4. MOXIFLOXACIN HCL [Concomitant]

REACTIONS (12)
  - ABDOMINAL PAIN [None]
  - ANOREXIA [None]
  - ANTIMICROBIAL SUSCEPTIBILITY TEST RESISTANT [None]
  - ECZEMA HERPETICUM [None]
  - FACE OEDEMA [None]
  - FLUID INTAKE REDUCED [None]
  - HERPES SIMPLEX [None]
  - MALAISE [None]
  - NAUSEA [None]
  - PYREXIA [None]
  - RENAL FAILURE ACUTE [None]
  - VOMITING [None]
